FAERS Safety Report 10248534 (Version 1)
Quarter: 2014Q2

REPORT INFORMATION
  Report Type: Spontaneous
  Country: CN (occurrence: None)
  Receive Date: 20140618
  Receipt Date: 20140618
  Transmission Date: 20141212
  Serious: Yes (Hospitalization)
  Sender: FDA-Public Use
  Company Number: 2392328

PATIENT
  Age: 42 Year
  Sex: Male

DRUGS (2)
  1. CYTARABINE [Suspect]
     Indication: CHRONIC MYELOID LEUKAEMIA
  2. DAUNORUBICIN [Suspect]
     Indication: CHRONIC MYELOID LEUKAEMIA

REACTIONS (5)
  - Pleural effusion [None]
  - Pericardial effusion [None]
  - Heart rate increased [None]
  - Blood pressure systolic inspiratory decreased [None]
  - Pneumonia [None]
